FAERS Safety Report 24358556 (Version 1)
Quarter: 2024Q3

REPORT INFORMATION
  Report Type: Spontaneous
  Country: US (occurrence: US)
  Receive Date: 20240924
  Receipt Date: 20240924
  Transmission Date: 20241017
  Serious: Yes (Other)
  Sender: PFIZER
  Company Number: US-PFIZER INC-202400260140

PATIENT
  Age: 67 Year
  Sex: Female

DRUGS (2)
  1. ADRIAMYCIN [Suspect]
     Active Substance: DOXORUBICIN HYDROCHLORIDE
     Dosage: 4 WEEKLY TREATMENTS (AS REPORTED)
     Dates: start: 201007, end: 201009
  2. CYTOXAN [Suspect]
     Active Substance: CYCLOPHOSPHAMIDE
     Dosage: 4 WEEKLY TREATMENTS (AS REPORTED)
     Dates: start: 201007, end: 201009

REACTIONS (1)
  - Asthma [Unknown]

NARRATIVE: CASE EVENT DATE: 20100101
